FAERS Safety Report 11731309 (Version 1)
Quarter: 2015Q4

REPORT INFORMATION
  Report Type: Spontaneous
  Country: US (occurrence: US)
  Receive Date: 20151110
  Receipt Date: 20151110
  Transmission Date: 20160304
  Serious: No
  Sender: FDA-Public Use
  Company Number: US-ELI_LILLY_AND_COMPANY-US201202003021

PATIENT
  Age: 69 Year
  Sex: Female

DRUGS (2)
  1. FORTEO [Suspect]
     Active Substance: TERIPARATIDE
     Indication: OSTEOPOROSIS
     Dosage: UNK, UNKNOWN
  2. FORTEO [Suspect]
     Active Substance: TERIPARATIDE

REACTIONS (17)
  - Kidney infection [Unknown]
  - Mental disorder [Unknown]
  - Pain in extremity [Unknown]
  - Dyspnoea [Unknown]
  - Erythema [Unknown]
  - Rash macular [Unknown]
  - Pain [Unknown]
  - Cystitis [Unknown]
  - Drug dose omission [Recovered/Resolved]
  - Peripheral swelling [Not Recovered/Not Resolved]
  - Skin discolouration [Unknown]
  - Fall [Unknown]
  - Injection site bruising [Unknown]
  - Dizziness [Unknown]
  - Gait disturbance [Unknown]
  - Generalised oedema [Unknown]
  - Confusional state [Unknown]

NARRATIVE: CASE EVENT DATE: 20120304
